FAERS Safety Report 23494850 (Version 4)
Quarter: 2024Q4

REPORT INFORMATION
  Report Type: Report from Study
  Country: JP (occurrence: JP)
  Receive Date: 20240207
  Receipt Date: 20241224
  Transmission Date: 20250115
  Serious: Yes (Hospitalization, Disabling, Other)
  Sender: ALEXION PHARMACEUTICALS
  Company Number: 2024A010876

PATIENT
  Age: 88 Year
  Weight: 41 kg

DRUGS (18)
  1. ANDEXXA [Suspect]
     Active Substance: ANDEXANET ALFA
     Indication: Cerebral haemorrhage
     Dosage: 1760 MILLIGRAM
  2. RIVAROXABAN [Concomitant]
     Active Substance: RIVAROXABAN
     Indication: Ischaemic stroke
     Dosage: 1760 MILLIGRAM, UNK
  3. EDOXABAN TOSYLATE [Concomitant]
     Active Substance: EDOXABAN TOSYLATE
     Dosage: 15 MILLIGRAM, QD
  4. RAMELTEON [Concomitant]
     Active Substance: RAMELTEON
     Indication: Anxiety disorder
     Dosage: 8 MILLIGRAM, QD
  5. LANSOPRAZOLE [Concomitant]
     Active Substance: LANSOPRAZOLE
     Indication: Prophylaxis
     Dosage: 15 MILLIGRAM, QD
  6. URAPIDIL [Concomitant]
     Active Substance: URAPIDIL
     Indication: Cardiac failure congestive
     Dosage: 15 MILLIGRAM, BID
  7. ISOSORBIDE DINITRATE [Concomitant]
     Active Substance: ISOSORBIDE DINITRATE
     Indication: Myocardial infarction
     Dosage: 40 MILLIGRAM, QD
  8. ATORVASTATIN [Concomitant]
     Active Substance: ATORVASTATIN
     Indication: Myocardial infarction
     Dosage: 10 MILLIGRAM, QD
  9. ATORVASTATIN [Concomitant]
     Active Substance: ATORVASTATIN
     Indication: Hyperlipidaemia
  10. HERBALS [Concomitant]
     Active Substance: HERBALS
     Indication: Anxiety disorder
     Dosage: 2.5 GRAM, TID
  11. HERBALS [Concomitant]
     Active Substance: HERBALS
     Indication: Anxiety disorder
  12. LEMBOREXANT [Concomitant]
     Active Substance: LEMBOREXANT
     Indication: Anxiety disorder
     Dosage: 5 MILLIGRAM, QD
  13. XARELTO [Concomitant]
     Active Substance: RIVAROXABAN
     Indication: Ischaemic stroke
  14. URAPIDIL [Concomitant]
     Active Substance: URAPIDIL
     Indication: Cardiac failure congestive
  15. ISOSORBIDE DINITRATE [Concomitant]
     Active Substance: ISOSORBIDE DINITRATE
     Indication: Cardiac failure congestive
  16. ROZEREM [Concomitant]
     Active Substance: RAMELTEON
     Indication: Anxiety disorder
  17. DAYVIGO [Concomitant]
     Active Substance: LEMBOREXANT
     Indication: Anxiety disorder
  18. EDOXABAN [Concomitant]
     Active Substance: EDOXABAN

REACTIONS (5)
  - Cerebral infarction [Recovered/Resolved with Sequelae]
  - Myocardial infarction [Recovering/Resolving]
  - Hyponatraemia [Recovering/Resolving]
  - Hypokalaemia [Recovered/Resolved]
  - Fibrin D dimer increased [Recovered/Resolved]
